FAERS Safety Report 14442233 (Version 3)
Quarter: 2020Q2

REPORT INFORMATION
  Report Type: Spontaneous
  Country: CZ (occurrence: CZ)
  Receive Date: 20180125
  Receipt Date: 20200415
  Transmission Date: 20200713
  Serious: Yes (Other)
  Sender: FDA-Public Use
  Company Number: CZ-MYLANLABS-2018M1005548

PATIENT
  Age: 73 Year
  Sex: Female

DRUGS (12)
  1. FELODIPINE. [Suspect]
     Active Substance: FELODIPINE
     Indication: PRODUCT USED FOR UNKNOWN INDICATION
     Dosage: UNK
     Route: 048
  2. ANOPYRIN [Suspect]
     Active Substance: ASPIRIN
     Indication: PRODUCT USED FOR UNKNOWN INDICATION
     Dosage: 50 MILLIGRAM
  3. METRONIDAZOLE. [Suspect]
     Active Substance: METRONIDAZOLE
     Indication: PRODUCT USED FOR UNKNOWN INDICATION
     Dosage: UNK
  4. ELIQUIS [Concomitant]
     Active Substance: APIXABAN
     Dosage: UNK
  5. DOXAZOSIN [Suspect]
     Active Substance: DOXAZOSIN MESYLATE
     Indication: HYPERTENSION
     Dosage: 6 MG (THE PATIENT USED HALF THE TABLET IN THE MORNING AND A WHOLE TABLET IN THE EVENING)
  6. BETAMED (BETAXOLOL HYDROCHLORIDE) [Suspect]
     Active Substance: BETAXOLOL HYDROCHLORIDE
     Indication: HYPERTENSION
     Dosage: 1 DOSAGE FORM, QDWHOLE TABLET OF BETAMED 20 MG IN THE EVENING
  7. PERINDOPRIL [Concomitant]
     Active Substance: PERINDOPRIL
     Indication: HYPERTENSION
     Dosage: UNK
  8. MOXONIDINE [Concomitant]
     Active Substance: MOXONIDINE
     Indication: HYPERTENSION
     Dosage: UNK
  9. AZATHIOPRINE. [Suspect]
     Active Substance: AZATHIOPRINE
     Indication: PRODUCT USED FOR UNKNOWN INDICATION
     Route: 048
  10. LOKREN [Suspect]
     Active Substance: BETAXOLOL HYDROCHLORIDE
     Indication: HYPERTENSION
     Dosage: 10 MILLIGRAM, QD, 10 MG IN THE EVENING (1/2 TABLET OF LOKREN 20 MG)
  11. INDAPAMIDE. [Concomitant]
     Active Substance: INDAPAMIDE
     Indication: HYPERTENSION
     Dosage: UNK
  12. HELICID                            /00661201/ [Suspect]
     Active Substance: OMEPRAZOLE
     Indication: PRODUCT USED FOR UNKNOWN INDICATION
     Dosage: 20 MG, BID (12 HOURS) (THE PATIENT WAS TAKING 20 MG IN THE MORNING AND 20 MG IN THE EVENING)

REACTIONS (9)
  - Peripheral swelling [Recovered/Resolved]
  - Hypersensitivity [Unknown]
  - Drug abuse [Unknown]
  - Product use in unapproved indication [Unknown]
  - Leukopenia [Recovered/Resolved]
  - Wrong technique in product usage process [Unknown]
  - Intentional product misuse [Unknown]
  - Medication error [Unknown]
  - Overdose [Unknown]
